FAERS Safety Report 5079984-7 (Version None)
Quarter: 2006Q3

REPORT INFORMATION
  Report Type: 
  Country: None (occurrence: None)
  Receive Date: 20060815
  Receipt Date: 20060804
  Transmission Date: 20061208
  Serious: Yes (Hospitalization)
  Sender: FDA-Public Use
  Company Number: US-JNJFOC-20060801670

PATIENT
  Sex: Male
  Weight: 68.49 kg

DRUGS (6)
  1. DURAGESIC-100 [Suspect]
     Indication: PAIN
     Route: 062
  2. ULTRAM [Concomitant]
     Route: 048
  3. MOBIC [Concomitant]
     Route: 048
  4. ZANAFLEX [Concomitant]
     Route: 048
  5. OXYCODONE HCL [Concomitant]
     Indication: BREAKTHROUGH PAIN
     Route: 048
  6. LIDODERM [Concomitant]
     Route: 062

REACTIONS (3)
  - DIPLOPIA [None]
  - HEADACHE [None]
  - INTRACRANIAL ANEURYSM [None]
